FAERS Safety Report 8732907 (Version 7)
Quarter: 2015Q1

REPORT INFORMATION
  Report Type: Spontaneous
  Country: US (occurrence: US)
  Receive Date: 20120820
  Receipt Date: 20150204
  Transmission Date: 20150721
  Serious: Yes (Hospitalization, Other)
  Sender: FDA-Public Use
  Company Number: US-PFIZER INC-2012198527

PATIENT
  Age: 64 Year
  Sex: Female
  Weight: 72.6 kg

DRUGS (13)
  1. ESTRADIOL. [Suspect]
     Active Substance: ESTRADIOL
     Indication: OSTEOPOROSIS PROPHYLAXIS
     Dosage: 0.5 MG, UNK
     Dates: start: 20070827, end: 20120210
  2. RANITIDINE [Concomitant]
     Active Substance: RANITIDINE\RANITIDINE HYDROCHLORIDE
     Indication: GASTROOESOPHAGEAL REFLUX DISEASE
     Dosage: 300 MG, 2X/DAY
     Dates: start: 2007
  3. PREMARIN [Suspect]
     Active Substance: ESTROGENS, CONJUGATED
     Indication: OSTEOPOROSIS PROPHYLAXIS
     Dosage: 0.625 MG, DAILY
     Route: 048
  4. PREMARIN [Suspect]
     Active Substance: ESTROGENS, CONJUGATED
     Dosage: 0.9 MG, 1X/DAY
     Dates: start: 2009, end: 201206
  5. PREMARIN [Suspect]
     Active Substance: ESTROGENS, CONJUGATED
     Indication: VULVOVAGINAL DRYNESS
     Dosage: UNK
     Route: 067
     Dates: end: 201206
  6. HUMULIN 70/30 [Concomitant]
     Active Substance: INSULIN HUMAN
     Indication: DIABETES MELLITUS
     Dosage: UNK, 2X/DAY
     Dates: end: 20141218
  7. ESTRACE [Concomitant]
     Active Substance: ESTRADIOL
     Indication: HORMONE REPLACEMENT THERAPY
     Dosage: 0.5 MG, UNK
     Dates: start: 20070119
  8. NOVOLOG MIX 70/30 [Concomitant]
     Active Substance: INSULIN ASPART
     Dosage: TWICE DAILY, 20 UNITS A DAY
     Dates: start: 20140612
  9. ESTRACE [Concomitant]
     Active Substance: ESTRADIOL
     Dosage: 1 MG, UNK
     Dates: start: 20111118, end: 20120210
  10. ESTROGEN [Concomitant]
     Active Substance: ESTRONE\SUS SCROFA OVARY
     Dosage: UNK
     Dates: start: 20090728, end: 20100105
  11. CIMETIDINE [Concomitant]
     Active Substance: CIMETIDINE
     Indication: GASTROOESOPHAGEAL REFLUX DISEASE
     Dosage: 2 MG, UNK
  12. TYLENOL [Concomitant]
     Active Substance: ACETAMINOPHEN
  13. GLIMEPIRIDE. [Concomitant]
     Active Substance: GLIMEPIRIDE
     Dosage: UNK
     Dates: start: 2007

REACTIONS (7)
  - Postmenopausal haemorrhage [Unknown]
  - Cervical polyp [Unknown]
  - Blood count abnormal [Unknown]
  - Platelet count decreased [Unknown]
  - Uterine spasm [Unknown]
  - Endometrial hyperplasia [Unknown]
  - Cervix neoplasm [Unknown]

NARRATIVE: CASE EVENT DATE: 201206
